FAERS Safety Report 8577351-2 (Version None)
Quarter: 2012Q3

REPORT INFORMATION
  Report Type: 
  Country: None (occurrence: None)
  Receive Date: 20120807
  Receipt Date: 20120724
  Transmission Date: 20120928
  Serious: Yes (Other)
  Sender: FDA-Public Use
  Company Number: CHPA2012US016621

PATIENT
  Age: 70 Year
  Sex: Female

DRUGS (1)
  1. EXCEDRIN EXTRA STRENGTH TABLETS [Suspect]
     Indication: PROPHYLAXIS
     Dosage: 2 DF, QD
     Route: 048
     Dates: end: 20120101

REACTIONS (8)
  - INCORRECT DRUG ADMINISTRATION DURATION [None]
  - ULCER [None]
  - BACK INJURY [None]
  - OVERDOSE [None]
  - THROMBOSIS [None]
  - POST PROCEDURAL COMPLICATION [None]
  - ARTHRITIS [None]
  - OFF LABEL USE [None]
